FAERS Safety Report 18936628 (Version 2)
Quarter: 2021Q1

REPORT INFORMATION
  Report Type: Spontaneous
  Country: US (occurrence: US)
  Receive Date: 20210225
  Receipt Date: 20210319
  Transmission Date: 20210420
  Serious: Yes (Other)
  Sender: FDA-Public Use
  Company Number: US-UNITED THERAPEUTICS-UNT-2021-001728

PATIENT
  Age: 58 Year
  Sex: Female
  Weight: 72.11 kg

DRUGS (8)
  1. ORENITRAM [Suspect]
     Active Substance: TREPROSTINIL
     Indication: PULMONARY ARTERIAL HYPERTENSION
     Dosage: UNK
     Route: 048
  2. ORENITRAM [Suspect]
     Active Substance: TREPROSTINIL
     Indication: PULMONARY ARTERIAL HYPERTENSION
     Dosage: UNK
     Route: 048
  3. SILDENAFIL CITRATE. [Concomitant]
     Active Substance: SILDENAFIL CITRATE
     Indication: PRODUCT USED FOR UNKNOWN INDICATION
     Dosage: UNK
     Route: 065
  4. ORENITRAM [Suspect]
     Active Substance: TREPROSTINIL
     Dosage: 3 MG, Q8H
     Route: 048
     Dates: start: 20210202
  5. ORENITRAM [Suspect]
     Active Substance: TREPROSTINIL
     Indication: PULMONARY ARTERIAL HYPERTENSION
     Dosage: UNK
     Route: 048
  6. ORENITRAM [Suspect]
     Active Substance: TREPROSTINIL
     Dosage: UNK
     Route: 048
  7. ORENITRAM [Suspect]
     Active Substance: TREPROSTINIL
     Indication: PULMONARY ARTERIAL HYPERTENSION
     Dosage: 2.5 MG, Q8H
     Route: 048
  8. ORENITRAM [Suspect]
     Active Substance: TREPROSTINIL
     Dosage: 3.25 MG, TID
     Route: 048

REACTIONS (14)
  - Feeling hot [Unknown]
  - Malaise [Unknown]
  - Haematochezia [Unknown]
  - Headache [Unknown]
  - Nervousness [Unknown]
  - Flatulence [Unknown]
  - Abdominal discomfort [Unknown]
  - Sleep disorder [Unknown]
  - Anxiety [Unknown]
  - Gastrooesophageal reflux disease [Unknown]
  - Gastrointestinal sounds abnormal [Unknown]
  - Flushing [Unknown]
  - Gastrointestinal motility disorder [Unknown]
  - Abdominal distension [Unknown]

NARRATIVE: CASE EVENT DATE: 202102
